FAERS Safety Report 9274974 (Version 2)
Quarter: 2013Q2

REPORT INFORMATION
  Report Type: Spontaneous
  Country: US (occurrence: US)
  Receive Date: 20130507
  Receipt Date: 20130620
  Transmission Date: 20140414
  Serious: No
  Sender: FDA-Public Use
  Company Number: US-BAYER-2013-056046

PATIENT
  Age: 32 Year
  Sex: Female
  Weight: 53.97 kg

DRUGS (3)
  1. MIRENA [Suspect]
     Indication: CONTRACEPTION
     Dosage: 20 MCG/24HR, CONT
     Route: 015
     Dates: start: 20130415, end: 20130415
  2. MIRENA [Suspect]
     Indication: CONTRACEPTION
     Dosage: 20 MCG/24HR, CONT
     Route: 015
  3. ZYRTEC [Concomitant]
     Dosage: 10 MG, PO DAILY
     Route: 048
     Dates: start: 20090213

REACTIONS (4)
  - Procedural pain [None]
  - Device difficult to use [None]
  - Abdominal pain lower [None]
  - Device expulsion [None]
